FAERS Safety Report 4672671-6 (Version None)
Quarter: 2005Q2

REPORT INFORMATION
  Report Type: 
  Country: None (occurrence: None)
  Receive Date: 20050524
  Receipt Date: 20050513
  Transmission Date: 20051028
  Serious: Yes (Other)
  Sender: FDA-Public Use
  Company Number: US-JNJFOC-20050205018

PATIENT
  Sex: Female
  Weight: 75.3 kg

DRUGS (8)
  1. REMICADE [Suspect]
     Route: 042
  2. REMICADE [Suspect]
     Indication: CROHN'S DISEASE
     Route: 042
  3. ZOCOR [Concomitant]
  4. METFORMIN [Concomitant]
  5. PREMERIN [Concomitant]
     Indication: DRUG USE FOR UNKNOWN INDICATION
  6. THIOGUANINE [Concomitant]
     Indication: CROHN'S DISEASE
  7. OXYCODON [Concomitant]
     Indication: PAIN
  8. VALIUM [Concomitant]

REACTIONS (2)
  - VISION BLURRED [None]
  - VISUAL ACUITY REDUCED [None]
